FAERS Safety Report 4845093-2 (Version None)
Quarter: 2005Q4

REPORT INFORMATION
  Report Type: 
  Country: None (occurrence: None)
  Receive Date: 20051115
  Receipt Date: 20050916
  Transmission Date: 20060501
  Serious: Yes (Other)
  Sender: FDA-Public Use
  Company Number: 418128

PATIENT
  Age: 58 Year
  Sex: Male
  Weight: 79.4 kg

DRUGS (4)
  1. PEGASYS [Suspect]
     Indication: HEPATITIS C
     Dosage: 180 MCG 1 PER WEEK SUBCUTANEOUS
     Route: 058
     Dates: start: 20050315, end: 20050815
  2. XANAX [Concomitant]
  3. PROGRAF [Concomitant]
  4. INSULIN [Concomitant]

REACTIONS (3)
  - FATIGUE [None]
  - HEADACHE [None]
  - PLATELET COUNT DECREASED [None]
